FAERS Safety Report 10933799 (Version 1)
Quarter: 2015Q1

REPORT INFORMATION
  Report Type: Spontaneous
  Country: MY (occurrence: MY)
  Receive Date: 20150320
  Receipt Date: 20150320
  Transmission Date: 20150721
  Serious: Yes (Hospitalization)
  Sender: FDA-Public Use
  Company Number: MY-B.I. PHARMACEUTICALS,INC./RIDGEFIELD-2015-BI-13573MD

PATIENT
  Age: 50 Year
  Sex: Female

DRUGS (6)
  1. GILOTRIF [Suspect]
     Active Substance: AFATINIB
     Indication: NON-SMALL CELL LUNG CANCER
     Route: 065
  2. GEFITINIB [Concomitant]
     Active Substance: GEFITINIB
     Indication: PRODUCT USED FOR UNKNOWN INDICATION
     Route: 065
  3. DOCETAXEL. [Concomitant]
     Active Substance: DOCETAXEL
     Indication: PRODUCT USED FOR UNKNOWN INDICATION
     Route: 065
  4. PLATINUM [Concomitant]
     Active Substance: PLATINUM
     Indication: PRODUCT USED FOR UNKNOWN INDICATION
     Route: 065
  5. PEMETREXED [Concomitant]
     Active Substance: PEMETREXED
     Indication: PRODUCT USED FOR UNKNOWN INDICATION
     Route: 065
  6. BEVACIZUMAB [Concomitant]
     Active Substance: BEVACIZUMAB
     Indication: PRODUCT USED FOR UNKNOWN INDICATION
     Route: 065

REACTIONS (1)
  - Cholecystitis infective [Unknown]
